FAERS Safety Report 12218020 (Version 3)
Quarter: 2016Q2

REPORT INFORMATION
  Report Type: Report from Study
  Country: US (occurrence: US)
  Receive Date: 20160329
  Receipt Date: 20160524
  Transmission Date: 20160815
  Serious: Yes (Hospitalization, Other)
  Sender: FDA-Public Use
  Company Number: US-ACTELION-A-US2015-124847

PATIENT
  Age: 85 Year
  Sex: Male

DRUGS (4)
  1. METOLAZONE. [Concomitant]
     Active Substance: METOLAZONE
  2. REVATIO [Concomitant]
     Active Substance: SILDENAFIL CITRATE
  3. MACITENTAN [Suspect]
     Active Substance: MACITENTAN
     Indication: PULMONARY ARTERIAL HYPERTENSION
     Dosage: 10 MG, QD
     Route: 048
     Dates: start: 20150821
  4. FUROSEMIDE. [Concomitant]
     Active Substance: FUROSEMIDE

REACTIONS (11)
  - Abnormal dreams [Unknown]
  - Gastric haemorrhage [Unknown]
  - Transfusion [Unknown]
  - Ascites [Unknown]
  - Limb discomfort [Unknown]
  - Haemoglobin decreased [Unknown]
  - No therapeutic response [Unknown]
  - Anaemia [Unknown]
  - Prostatic disorder [Unknown]
  - Ejection fraction abnormal [Unknown]
  - Fluid retention [Unknown]

NARRATIVE: CASE EVENT DATE: 201509
